FAERS Safety Report 18665914 (Version 1)
Quarter: 2020Q4

REPORT INFORMATION
  Report Type: Spontaneous
  Country: GB (occurrence: GB)
  Receive Date: 20201226
  Receipt Date: 20201226
  Transmission Date: 20210114
  Serious: Yes (Other)
  Sender: FDA-Public Use
  Company Number: GB-TEVA-2020-GB-1860850

PATIENT
  Age: 28 Year
  Sex: Female
  Weight: 121 kg

DRUGS (1)
  1. PROPRANOLOL [Suspect]
     Active Substance: PROPRANOLOL HYDROCHLORIDE
     Indication: PALPITATIONS
     Dosage: 40MG
     Route: 048
     Dates: start: 20201111, end: 20201201

REACTIONS (7)
  - Feeling abnormal [Unknown]
  - Illness [Not Recovered/Not Resolved]
  - Palpitations [Not Recovered/Not Resolved]
  - Extrasystoles [Not Recovered/Not Resolved]
  - Hypoaesthesia [Not Recovered/Not Resolved]
  - Insomnia [Not Recovered/Not Resolved]
  - Chest pain [Not Recovered/Not Resolved]

NARRATIVE: CASE EVENT DATE: 20201201
